FAERS Safety Report 8312801-8 (Version None)
Quarter: 2012Q2

REPORT INFORMATION
  Report Type: 
  Country: None (occurrence: None)
  Receive Date: 20120426
  Receipt Date: 20120418
  Transmission Date: 20120825
  Serious: No
  Sender: FDA-Public Use
  Company Number: US-PFIZER INC-2012097550

PATIENT
  Sex: Female

DRUGS (1)
  1. XALKORI [Suspect]
     Dosage: 250 MG, UNK
     Dates: start: 20120406

REACTIONS (4)
  - NAUSEA [None]
  - VOMITING [None]
  - VISUAL IMPAIRMENT [None]
  - DIARRHOEA [None]
